FAERS Safety Report 12616687 (Version 1)
Quarter: 2016Q3

REPORT INFORMATION
  Report Type: Spontaneous
  Country: US (occurrence: US)
  Receive Date: 20160802
  Receipt Date: 20160802
  Transmission Date: 20161109
  Serious: Yes (Other)
  Sender: FDA-Public Use
  Company Number: US-NAPPMUNDI-USA-2016-0132575

PATIENT
  Sex: Female

DRUGS (2)
  1. DILAUDID [Suspect]
     Active Substance: HYDROMORPHONE HYDROCHLORIDE
     Indication: FIBROMYALGIA
     Route: 048
  2. HYDROCODONE [Suspect]
     Active Substance: HYDROCODONE
     Indication: PAIN MANAGEMENT
     Route: 048

REACTIONS (4)
  - Systemic lupus erythematosus [Unknown]
  - Feeling abnormal [Unknown]
  - Pain [Unknown]
  - Activities of daily living impaired [Unknown]
